FAERS Safety Report 14067137 (Version 2)
Quarter: 2017Q4

REPORT INFORMATION
  Report Type: Spontaneous
  Country: RU (occurrence: RU)
  Receive Date: 20171009
  Receipt Date: 20171101
  Transmission Date: 20180321
  Serious: Yes (Life-Threatening)
  Sender: FDA-Public Use
  Company Number: PHHY2017RU147952

PATIENT
  Age: 2 Month
  Sex: Male
  Weight: 3 kg

DRUGS (20)
  1. ERALFON [Concomitant]
     Indication: PRODUCT USED FOR UNKNOWN INDICATION
     Dosage: 400 MG, QD
     Route: 058
     Dates: start: 20170715, end: 20170724
  2. URSOFALK [Concomitant]
     Active Substance: URSODIOL
     Indication: PRODUCT USED FOR UNKNOWN INDICATION
     Dosage: 40 MG, QD
     Route: 048
     Dates: start: 20170718, end: 20170814
  3. DEXAMETHASONE. [Concomitant]
     Active Substance: DEXAMETHASONE
     Indication: ENCEPHALITIS
     Dosage: 2 MG, QD
     Route: 042
     Dates: start: 20170821
  4. AMPICILLIN [Concomitant]
     Active Substance: AMPICILLIN
     Indication: ENCEPHALITIS
     Dosage: 150 MG, BID
     Route: 042
     Dates: start: 20170814, end: 20170821
  5. INTRATECT [Concomitant]
     Active Substance: HUMAN IMMUNOGLOBULIN G
     Indication: ENCEPHALITIS
     Dosage: 20 ML, ONCE/SINGLE
     Route: 042
     Dates: start: 20170817, end: 20170817
  6. SULTASIN [Concomitant]
     Indication: PRODUCT USED FOR UNKNOWN INDICATION
     Dosage: 55 MG, BID
     Route: 042
     Dates: start: 20170626, end: 20170704
  7. BIFIDUMBACTERIN [Concomitant]
     Indication: DYSBACTERIOSIS
     Dosage: 2.5 DF, BID
     Route: 048
     Dates: start: 20170814, end: 20170821
  8. CEFEPIME [Concomitant]
     Active Substance: CEFEPIME HYDROCHLORIDE
     Indication: ENCEPHALITIS
     Dosage: 150 MG, TID
     Route: 042
     Dates: start: 20170814, end: 20170821
  9. ACTOVEGIN [Concomitant]
     Active Substance: BLOOD, BOVINE
     Indication: ENCEPHALITIS
     Dosage: 0.5 ML, QD
     Route: 042
     Dates: start: 20170814, end: 20170821
  10. SULCEF [Concomitant]
     Active Substance: CEFOPERAZONE\SULBACTAM
     Indication: PRODUCT USED FOR UNKNOWN INDICATION
     Route: 065
  11. GLUCOSE [Concomitant]
     Active Substance: DEXTROSE
     Indication: PRODUCT USED FOR UNKNOWN INDICATION
     Dosage: 25 ML, TID
     Route: 042
     Dates: start: 20170821
  12. AMIKACIN [Concomitant]
     Active Substance: AMIKACIN
     Indication: PRODUCT USED FOR UNKNOWN INDICATION
     Dosage: 10 MG, BID
     Route: 042
     Dates: start: 20170626, end: 20170701
  13. MAGNESIUM SULFATE. [Concomitant]
     Active Substance: MAGNESIUM SULFATE
     Indication: INTRACRANIAL PRESSURE INCREASED
     Dosage: 0.3 ML, QD
     Route: 042
     Dates: start: 20170814, end: 20170817
  14. GLUCOSE [Concomitant]
     Active Substance: DEXTROSE
     Indication: DETOXIFICATION
     Dosage: 40 ML, QD
     Route: 065
     Dates: start: 20170814
  15. ANALGIN (METAMIZOLE SODIUM) [Concomitant]
     Active Substance: METAMIZOLE SODIUM
     Indication: HYPERTHERMIA
     Dosage: 0.1 ML, ONCE/SINGLE
     Route: 030
     Dates: start: 20170814, end: 20170814
  16. MERONEM [Concomitant]
     Active Substance: MEROPENEM
     Indication: ENCEPHALITIS
     Dosage: 120 MG, TID
     Route: 042
     Dates: start: 20170821
  17. EDICIN [Suspect]
     Active Substance: VANCOMYCIN HYDROCHLORIDE
     Indication: ENCEPHALITIS
     Dosage: 45 MG, UNK
     Route: 042
     Dates: start: 20170821, end: 20170821
  18. ALBUMIN [Concomitant]
     Active Substance: ALBUMIN HUMAN
     Indication: HYPOALBUMINAEMIA
     Dosage: 10 ML, QD
     Route: 042
     Dates: start: 20170814, end: 20170815
  19. FLUCORUS [Concomitant]
     Indication: PROPHYLAXIS
     Dosage: 20 MG, QD
     Route: 042
     Dates: start: 20170814, end: 20170821
  20. CAFFEINE. [Concomitant]
     Active Substance: CAFFEINE
     Indication: PRODUCT USED FOR UNKNOWN INDICATION
     Dosage: 0.1 UNK, QD
     Route: 058
     Dates: start: 20170626, end: 20170701

REACTIONS (7)
  - Respiratory distress [Unknown]
  - Skin disorder [Not Recovered/Not Resolved]
  - Type I hypersensitivity [Unknown]
  - Hypotension [Not Recovered/Not Resolved]
  - Asthenia [Not Recovered/Not Resolved]
  - Metabolic disorder [Not Recovered/Not Resolved]
  - Dyspnoea [Not Recovered/Not Resolved]

NARRATIVE: CASE EVENT DATE: 20170821
